FAERS Safety Report 7964105-0 (Version None)
Quarter: 2011Q4

REPORT INFORMATION
  Report Type: 
  Country: None (occurrence: None)
  Receive Date: 20111206
  Receipt Date: 20111121
  Transmission Date: 20120403
  Serious: No
  Sender: FDA-Public Use
  Company Number: SPI201100317

PATIENT
  Age: 59 Year
  Sex: Female
  Weight: 49.9 kg

DRUGS (11)
  1. ZINC [Concomitant]
  2. DEXILANT [Concomitant]
  3. LEVOTHYROXINE SODIUM [Concomitant]
  4. DIOVAN [Concomitant]
  5. AMITIZA [Suspect]
     Indication: IRRITABLE BOWEL SYNDROME
     Dosage: 24 MCG, BID, ORAL
     Route: 048
     Dates: start: 20111120
  6. AMITIZA [Suspect]
     Indication: CONSTIPATION
     Dosage: 24 MCG, BID, ORAL
     Route: 048
     Dates: start: 20111120
  7. TRAMADOL HCL [Concomitant]
  8. CALCIUM [Concomitant]
  9. CYMBALTA [Concomitant]
  10. XANAX [Concomitant]
  11. FOLIC ACID [Concomitant]

REACTIONS (6)
  - BACK PAIN [None]
  - PARAESTHESIA [None]
  - BACK INJURY [None]
  - DYSPNOEA [None]
  - CHEST DISCOMFORT [None]
  - PRURITUS GENERALISED [None]
